FAERS Safety Report 5527038-5 (Version None)
Quarter: 2007Q4

REPORT INFORMATION
  Report Type: 
  Country: None (occurrence: None)
  Receive Date: 20071127
  Receipt Date: 20071113
  Transmission Date: 20080405
  Serious: Yes (Hospitalization)
  Sender: FDA-Public Use
  Company Number: JP-GENENTECH-250176

PATIENT
  Sex: Female

DRUGS (3)
  1. BEVACIZUMAB [Suspect]
     Indication: COLON CANCER METASTATIC
     Dosage: 5 MG, QD
     Route: 042
     Dates: start: 20070911, end: 20071002
  2. IRINOTECAN HCL [Suspect]
     Indication: COLORECTAL CANCER METASTATIC
     Dosage: 150 MG/ML, QD
     Route: 042
     Dates: start: 20070911, end: 20071002
  3. FLUOROURACIL [Suspect]
     Indication: COLORECTAL CANCER METASTATIC
     Dosage: 400 MG/M2, QD
     Route: 042
     Dates: start: 20070911, end: 20071004

REACTIONS (2)
  - ANAEMIA [None]
  - EPISTAXIS [None]
